FAERS Safety Report 7889965-3 (Version None)
Quarter: 2011Q4

REPORT INFORMATION
  Report Type: 
  Country: None (occurrence: None)
  Receive Date: 20111103
  Receipt Date: 20111026
  Transmission Date: 20120403
  Serious: Yes (Death, Other)
  Sender: FDA-Public Use
  Company Number: PL-BAXTER-2011BH033639

PATIENT
  Sex: Male

DRUGS (3)
  1. DIANEAL [Suspect]
     Indication: PERITONEAL DIALYSIS
     Route: 033
  2. EXTRANEAL [Suspect]
     Indication: PERITONEAL DIALYSIS
     Route: 033
  3. DIANEAL [Suspect]
     Route: 033

REACTIONS (3)
  - PERITONEAL FIBROSIS [None]
  - CIRCULATORY COLLAPSE [None]
  - INTESTINAL OBSTRUCTION [None]
